FAERS Safety Report 7176634-0 (Version None)
Quarter: 2010Q4

REPORT INFORMATION
  Report Type: 
  Country: None (occurrence: None)
  Receive Date: 20101220
  Receipt Date: 20101207
  Transmission Date: 20110411
  Serious: Yes (Hospitalization)
  Sender: FDA-Public Use
  Company Number: PHHY2010FR83535

PATIENT
  Sex: Male

DRUGS (10)
  1. TEGRETOL [Suspect]
     Indication: EPILEPSY
     Dosage: 200 MG, BID
     Route: 048
     Dates: start: 19960101
  2. TEGRETOL [Suspect]
     Dosage: 200 MG, BID
     Route: 048
     Dates: end: 20101006
  3. PLAVIX [Concomitant]
  4. SELOKEN [Concomitant]
     Dosage: 100 MG, UNK
  5. TAHOR [Concomitant]
     Dosage: 80 MG, UNK
  6. KARDEGIC [Concomitant]
     Dosage: 75 MG, UNK
  7. MIANSERIN [Concomitant]
     Dosage: 60 MG, UNK
  8. ZOLPIDEM [Concomitant]
     Dosage: 10 MG, UNK
  9. NORDAZ [Concomitant]
     Dosage: 15 MG, UNK
  10. KEPPRA [Concomitant]

REACTIONS (3)
  - DERMATITIS ACNEIFORM [None]
  - SCAB [None]
  - SKIN LESION [None]
